FAERS Safety Report 5853296-3 (Version None)
Quarter: 2008Q3

REPORT INFORMATION
  Report Type: 
  Country: None (occurrence: None)
  Receive Date: 20080820
  Receipt Date: 20080811
  Transmission Date: 20090109
  Serious: Yes (Death)
  Sender: FDA-Public Use
  Company Number: 2008US002129

PATIENT
  Age: 23 Year
  Sex: Male

DRUGS (4)
  1. PROGRAF [Suspect]
     Indication: STEM CELL TRANSPLANT
  2. METHOTREXATE [Suspect]
     Indication: STEM CELL TRANSPLANT
  3. VALGANCICLOVIR HCL [Suspect]
     Indication: CYTOMEGALOVIRUS INFECTION
  4. PREDNISOLONE ACETATE [Concomitant]

REACTIONS (16)
  - ASCITES [None]
  - CYTOMEGALOVIRUS INFECTION [None]
  - DIARRHOEA [None]
  - ENCEPHALOPATHY [None]
  - ENTEROCOCCAL INFECTION [None]
  - GENERAL PHYSICAL HEALTH DETERIORATION [None]
  - HEPATIC ARTERY THROMBOSIS [None]
  - INTERNATIONAL NORMALISED RATIO DECREASED [None]
  - LIVER ABSCESS [None]
  - LIVER TRANSPLANT [None]
  - NAUSEA [None]
  - NECROSIS [None]
  - PANCYTOPENIA [None]
  - POST PROCEDURAL BILE LEAK [None]
  - RENAL FAILURE [None]
  - VOMITING [None]
